FAERS Safety Report 25917976 (Version 1)
Quarter: 2025Q4

REPORT INFORMATION
  Report Type: Spontaneous
  Country: US (occurrence: US)
  Receive Date: 20251014
  Receipt Date: 20251014
  Transmission Date: 20260118
  Serious: Yes (Death, Other)
  Sender: AMGEN
  Company Number: US-AMGEN-USASP2025199377

PATIENT
  Age: 42 Year
  Sex: Male

DRUGS (4)
  1. FILGRASTIM [Suspect]
     Active Substance: FILGRASTIM
     Indication: Haemophagocytic lymphohistiocytosis
     Route: 065
  2. FILGRASTIM [Suspect]
     Active Substance: FILGRASTIM
     Indication: Off label use
  3. DEXAMETHASONE [Concomitant]
     Active Substance: DEXAMETHASONE
     Indication: Haemophagocytic lymphohistiocytosis
  4. ETOPOSIDE [Concomitant]
     Active Substance: ETOPOSIDE
     Indication: Haemophagocytic lymphohistiocytosis

REACTIONS (3)
  - Multiple organ dysfunction syndrome [Fatal]
  - Drug effective for unapproved indication [Unknown]
  - Off label use [Unknown]
